FAERS Safety Report 20445098 (Version 1)
Quarter: 2022Q1

REPORT INFORMATION
  Report Type: Spontaneous
  Country: US (occurrence: None)
  Receive Date: 20220208
  Receipt Date: 20220208
  Transmission Date: 20220423
  Serious: Yes (Hospitalization)
  Sender: FDA-Public Use
  Company Number: None

PATIENT
  Sex: Female

DRUGS (1)
  1. REBIF [Suspect]
     Active Substance: INTERFERON BETA-1A
     Indication: Multiple sclerosis
     Dosage: 44 MCG/0.5ML  3 TIMES A WEEK SUBCUTANEOUSLY??TO ON HOLD?
     Route: 058

REACTIONS (3)
  - Pyrexia [None]
  - Coronavirus infection [None]
  - Therapy interrupted [None]
